FAERS Safety Report 17469107 (Version 1)
Quarter: 2020Q1

REPORT INFORMATION
  Report Type: Spontaneous
  Country: US (occurrence: US)
  Receive Date: 20200227
  Receipt Date: 20200227
  Transmission Date: 20200409
  Serious: No
  Sender: FDA-Public Use
  Company Number: US-SA-2020SA050085

PATIENT
  Sex: Female

DRUGS (1)
  1. ALLEGRA ALLERGY [Suspect]
     Active Substance: FEXOFENADINE HYDROCHLORIDE
     Route: 065

REACTIONS (6)
  - Somnolence [Unknown]
  - Insomnia [Unknown]
  - Feeling jittery [Unknown]
  - Tremor [Unknown]
  - Anxiety [Unknown]
  - Hypersensitivity [Unknown]
